FAERS Safety Report 12594237 (Version 5)
Quarter: 2016Q4

REPORT INFORMATION
  Report Type: Spontaneous
  Country: US (occurrence: US)
  Receive Date: 20160726
  Receipt Date: 20161222
  Transmission Date: 20170207
  Serious: Yes (Hospitalization, Other)
  Sender: FDA-Public Use
  Company Number: US-PFIZER INC-2016354743

PATIENT
  Age: 75 Year
  Sex: Female
  Weight: 73.94 kg

DRUGS (28)
  1. LANTUS [Concomitant]
     Active Substance: INSULIN GLARGINE
     Indication: DIABETES MELLITUS
     Dosage: 50 IU, 1X/DAY, (AT NIGHT TIME)
  2. LISINOPRIL. [Concomitant]
     Active Substance: LISINOPRIL
     Dosage: 20 MG, 1X/DAY  (ONCE DAILY IN THE MORNING)
  3. SODIUM CHLORIDE. [Concomitant]
     Active Substance: SODIUM CHLORIDE
     Indication: NASAL CONGESTION
     Dosage: UNK, 2X/DAY  (TWO SPRAYS IN MORNING AND BEDTIME)
  4. WARFARIN [Concomitant]
     Active Substance: WARFARIN
     Indication: ANTICOAGULANT THERAPY
     Dosage: 2 MG, UNK, (TUESDAY, WEDNESDAY, THURSDAY;)
     Route: 048
     Dates: start: 2002
  5. CITALOPRAM [Concomitant]
     Active Substance: CITALOPRAM HYDROBROMIDE
     Indication: ANXIETY
     Dosage: 20 MG, DAILY
     Route: 048
  6. WARFARIN [Concomitant]
     Active Substance: WARFARIN
     Dosage: 1 MG, UNK, (FRIDAY SATURDAY, SUNDAY, MONDAY DAILY BY MOUTH AT 6PM)
     Route: 048
     Dates: start: 2002
  7. ESTROGENS CONJUGATED [Concomitant]
     Active Substance: ESTROGENS, CONJUGATED
     Dosage: UNK, 1X/DAY
     Route: 067
     Dates: start: 201609
  8. HUMALOG [Concomitant]
     Active Substance: INSULIN LISPRO
     Indication: DIABETES MELLITUS
     Dosage: UNK, 4X/DAY  (75/25 SLIDING SCALE)
  9. NITROGLYCERIN. [Concomitant]
     Active Substance: NITROGLYCERIN
     Indication: CARDIAC DISORDER
     Dosage: 0.4 MG, AS NEEDED
  10. RESTASIS [Concomitant]
     Active Substance: CYCLOSPORINE
     Dosage: 2 GTT, 2X/DAY, (0.05% OPHTHALMIC EMULSION 1 DROP IN EACH EYE, MORNING AND NIGHT)
     Route: 047
  11. ALPRAZOLAM. [Concomitant]
     Active Substance: ALPRAZOLAM
     Indication: NERVE INJURY
     Dosage: 5 MG, DAILY (2MG ONE TABLET BY MOUTH IN MORNING AND HALF TABLET IN DAYTIME, 2MG AT BEDTIME)
     Route: 048
  12. ASPIRIN. [Concomitant]
     Active Substance: ASPIRIN
     Indication: ANTICOAGULANT THERAPY
     Dosage: 81 MG, DAILY
  13. ASPIRIN. [Concomitant]
     Active Substance: ASPIRIN
     Indication: CARDIAC DISORDER
  14. BIOTIN [Concomitant]
     Active Substance: BIOTIN
     Dosage: 1 DF, DAILY, (5000MG-10MG-50MG TABLET ONE CAPSULE BY MOUTH DAILY)
     Route: 048
     Dates: start: 201609
  15. LYRICA [Suspect]
     Active Substance: PREGABALIN
     Dosage: 200 MG, 3X/DAY
     Route: 048
     Dates: start: 2016
  16. LYRICA [Suspect]
     Active Substance: PREGABALIN
     Dosage: 200MG 1 CAPSULE 3 TIMES DAY AND ONE AT NIGHT
     Route: 048
     Dates: start: 2016
  17. NYSTATIN. [Concomitant]
     Active Substance: NYSTATIN
     Indication: ERYTHEMA
     Dosage: UNK, 2X/DAY (APPLY TO INNER THIGH IN THE MORNING AND NIGHT)
     Dates: start: 201605
  18. PRAVASTATIN. [Concomitant]
     Active Substance: PRAVASTATIN
     Dosage: 40 MG, UNK
     Route: 048
  19. TETRAHYDROZOLINE [Concomitant]
     Active Substance: TETRAHYDROZOLINE
     Indication: DRY EYE
     Dosage: UNK, 2X/DAY (0.05 EYEDROPS EVERY MORNING AND NIGHT)
  20. TRAZODONE [Concomitant]
     Active Substance: TRAZODONE HYDROCHLORIDE
     Indication: SLEEP DISORDER
     Dosage: 100 MG, 1X/DAY  (ONE BY MOUTH NIGHTLY)
     Route: 048
  21. CARVEDILOL. [Concomitant]
     Active Substance: CARVEDILOL
     Indication: CARDIAC DISORDER
     Dosage: 3.125 MG, 2X/DAY, (TWO TIMES DAILY BY MOUTH WITH MEALS)
     Route: 048
  22. LYRICA [Suspect]
     Active Substance: PREGABALIN
     Indication: DIABETIC NEUROPATHY
     Dosage: 100 MG, UNK
     Route: 048
     Dates: start: 201604
  23. ACETAMINOPHEN. [Concomitant]
     Active Substance: ACETAMINOPHEN
     Indication: HEADACHE
     Dosage: 500 MG, AS NEEDED
  24. ATORVASTATIN [Concomitant]
     Active Substance: ATORVASTATIN
     Indication: CARDIAC DISORDER
     Dosage: 80 MG, DAILY
  25. SPIRONOLACTONE. [Concomitant]
     Active Substance: SPIRONOLACTONE
     Dosage: 12.5 MG, DAILY
     Route: 048
  26. AMOXICILLIN. [Concomitant]
     Active Substance: AMOXICILLIN
     Indication: URINARY TRACT INFECTION
     Dosage: UNK, (875/12.5MG PER TABLET)
     Dates: start: 201609
  27. CLEAR EYES [Concomitant]
     Active Substance: NAPHAZOLINE HYDROCHLORIDE
     Indication: DRY EYE
     Dosage: 2 GTT, 1X/DAY,  (0.025-0.2-05% ONE DROP INTO EYES EVERY MORNING)
     Route: 047
  28. CLOPIDOGREL [Concomitant]
     Active Substance: CLOPIDOGREL BISULFATE
     Indication: ANTIPLATELET THERAPY
     Dosage: 75 MG, DAILY
     Route: 048

REACTIONS (14)
  - Chest pain [Not Recovered/Not Resolved]
  - Drug ineffective [Unknown]
  - Urinary tract infection [Unknown]
  - Escherichia urinary tract infection [Unknown]
  - Fluid retention [Not Recovered/Not Resolved]
  - Diarrhoea [Recovered/Resolved]
  - Myocardial infarction [Not Recovered/Not Resolved]
  - Weight increased [Not Recovered/Not Resolved]
  - Coronary artery occlusion [Unknown]
  - Cardiac disorder [Not Recovered/Not Resolved]
  - Sensory loss [Unknown]
  - Overdose [Not Recovered/Not Resolved]
  - Memory impairment [Not Recovered/Not Resolved]
  - Pain in extremity [Unknown]

NARRATIVE: CASE EVENT DATE: 2016
